FAERS Safety Report 18269383 (Version 2)
Quarter: 2020Q3

REPORT INFORMATION
  Report Type: Report from Study
  Country: GB (occurrence: GB)
  Receive Date: 20200915
  Receipt Date: 20200928
  Transmission Date: 20201103
  Serious: Yes (Hospitalization)
  Sender: FDA-Public Use
  Company Number: GB-BAYER-2020-197379

PATIENT
  Age: 77 Year
  Sex: Male
  Weight: 88 kg

DRUGS (7)
  1. CLOPIDOGREL [Concomitant]
     Active Substance: CLOPIDOGREL BISULFATE
     Indication: ANTIPLATELET THERAPY
     Dosage: UNK
     Route: 065
  2. TRASYLOL [Suspect]
     Active Substance: APROTININ
     Indication: HEART VALVE REPLACEMENT
     Dosage: 600 MILLILITRE TOTAL LOADING DOSE 2 MILLION KIU PUMP PRIMING DOSE 2 MILLION KIU TOTAL CONTINUOUS INF
     Route: 065
     Dates: start: 20190413, end: 20190413
  3. RED BLOOD CELLS [Concomitant]
     Active Substance: HUMAN RED BLOOD CELL
     Indication: TRANSFUSION
     Dosage: 1200 MILLILITRE TOTAL INTRA AND POST?OPERATIVELY (UP TO 48 HOURS)
     Route: 065
     Dates: start: 20190413
  4. PLATELETS [Concomitant]
     Active Substance: HUMAN PLATELET, ALLOGENIC
     Indication: TRANSFUSION
     Dosage: 440 MILLILITRE TOTAL INTRA AND POST?OPERATIVELY (UP TO 48 HOURS)
     Dates: start: 20190413
  5. FRESH FROZEN PLASMA [Concomitant]
     Active Substance: HUMAN PLASMA
     Indication: TRANSFUSION
     Dosage: 1200 MILLILITRE TOTAL INTRA AND POST?OPERATIVELY (UP TO 48 HOURS)
     Route: 065
     Dates: start: 20190413
  6. CRYOPRECIPITATE [Concomitant]
     Active Substance: CRYOPRECIPITATED ANTIHEMOPHILIC FACTOR (HUMAN)
     Indication: TRANSFUSION
     Dosage: 120 MILLILITRE TOTAL INTRA AND POST?OPERATIVELY (UP TO 48 HOURS)
     Route: 065
     Dates: start: 20190413
  7. HEPARIN [Concomitant]
     Active Substance: HEPARIN SODIUM
     Indication: ANTICOAGULANT THERAPY
     Dosage: 50 KILO?INTERNATIONAL UNIT TOTAL DURING SURGERY
     Route: 065
     Dates: start: 20190913, end: 20190913

REACTIONS (2)
  - Product use in unapproved indication [Unknown]
  - Renal impairment [Not Recovered/Not Resolved]

NARRATIVE: CASE EVENT DATE: 20190413
